FAERS Safety Report 9608955 (Version 1)
Quarter: 2013Q4

REPORT INFORMATION
  Report Type: Spontaneous
  Country: DE (occurrence: DE)
  Receive Date: 20131009
  Receipt Date: 20131009
  Transmission Date: 20140711
  Serious: Yes (Other)
  Sender: FDA-Public Use
  Company Number: DE-PFIZER INC-2013282766

PATIENT
  Age: 58 Year
  Sex: Male

DRUGS (1)
  1. VFEND [Suspect]
     Indication: GASTROINTESTINAL INFECTION
     Dosage: 200 MG, UNK
     Dates: start: 201307, end: 201309

REACTIONS (2)
  - Lymphoma [Unknown]
  - Disease progression [Unknown]
